FAERS Safety Report 8262448-7 (Version None)
Quarter: 2012Q1

REPORT INFORMATION
  Report Type: 
  Country: None (occurrence: None)
  Receive Date: 20120321
  Receipt Date: 20111020
  Transmission Date: 20120608
  Serious: Yes (Hospitalization)
  Sender: FDA-Public Use
  Company Number: 2011SP049981

PATIENT
  Sex: Male

DRUGS (2)
  1. RIBAVIRIN [Suspect]
     Indication: HEPATITIS C
     Dates: start: 20110214
  2. PEG-INTRON [Suspect]
     Indication: HEPATITIS C
     Dates: start: 20110914

REACTIONS (2)
  - DYSPNOEA [None]
  - CHEST PAIN [None]
